FAERS Safety Report 6800659-5 (Version None)
Quarter: 2010Q2

REPORT INFORMATION
  Report Type: 
  Country: None (occurrence: None)
  Receive Date: 20100625
  Receipt Date: 20100625
  Transmission Date: 20101027
  Serious: Yes (Disabling, Other)
  Sender: FDA-Public Use
  Company Number: None

PATIENT
  Age: 55 Year
  Sex: Male
  Weight: 76.2043 kg

DRUGS (2)
  1. NUBAIN [Suspect]
     Indication: CHEST TUBE INSERTION
     Dosage: UNKNOWN UNKNOWN INTRAVESICAL
     Route: 043
     Dates: start: 20091208, end: 20091208
  2. NUBAIN [Suspect]
     Indication: LUNG DISORDER
     Dosage: UNKNOWN UNKNOWN INTRAVESICAL
     Route: 043
     Dates: start: 20091208, end: 20091208

REACTIONS (2)
  - APPARENT DEATH [None]
  - UNEVALUABLE EVENT [None]
